FAERS Safety Report 8182801-X (Version None)
Quarter: 2012Q1

REPORT INFORMATION
  Report Type: 
  Country: None (occurrence: None)
  Receive Date: 20120305
  Receipt Date: 20120227
  Transmission Date: 20120608
  Serious: Yes (Hospitalization, Other)
  Sender: FDA-Public Use
  Company Number: US-CELGENEUS-163-21880-11091849

PATIENT
  Sex: Male

DRUGS (8)
  1. ACYCLOVIR [Concomitant]
     Indication: ANTIVIRAL PROPHYLAXIS
     Dosage: 400 MILLIGRAM
     Route: 065
     Dates: start: 20110214
  2. REVLIMID [Suspect]
     Dosage: 10 MILLIGRAM
     Route: 048
     Dates: start: 20110401, end: 20110501
  3. CATAPRES [Concomitant]
     Dosage: .1 MILLIGRAM
     Route: 065
     Dates: start: 20100101
  4. REVLIMID [Suspect]
     Dosage: 10 MILLIGRAM
     Route: 048
     Dates: start: 20120201
  5. ASPIRIN [Concomitant]
     Indication: THROMBOSIS PROPHYLAXIS
     Dosage: 325 MILLIGRAM
     Route: 065
  6. REVLIMID [Suspect]
     Dosage: 10 MILLIGRAM
     Route: 048
     Dates: start: 20110901, end: 20111201
  7. DIOVAN HCT [Concomitant]
     Dosage: 320 MILLIGRAM
     Route: 065
     Dates: start: 20100101
  8. CLOMIPRAMINE HCL [Concomitant]
     Route: 065

REACTIONS (1)
  - ACCESSORY SPLEEN [None]
